FAERS Safety Report 5644529-7 (Version None)
Quarter: 2008Q1

REPORT INFORMATION
  Report Type: 
  Country: None (occurrence: None)
  Receive Date: 20080229
  Receipt Date: 20070216
  Transmission Date: 20080703
  Serious: No
  Sender: FDA-Public Use
  Company Number: A0639890A

PATIENT
  Sex: Female

DRUGS (4)
  1. VALTREX [Suspect]
     Dosage: 2TAB PER DAY
     Route: 065
     Dates: start: 20070129
  2. CREST W/ FLUORIDE [Suspect]
     Indication: DENTAL CLEANING
  3. COLGATE [Suspect]
     Indication: DENTAL CLEANING
  4. ARM + HAMMER DENTAL CARE TOOTHPASTE [Suspect]
     Indication: DENTAL CLEANING

REACTIONS (7)
  - DEPRESSION [None]
  - DRY MOUTH [None]
  - FEELING ABNORMAL [None]
  - GLOSSODYNIA [None]
  - IRRITABILITY [None]
  - ORAL DISCOMFORT [None]
  - ORAL DISORDER [None]
